FAERS Safety Report 11101461 (Version 2)
Quarter: 2015Q2

REPORT INFORMATION
  Report Type: Spontaneous
  Country: SE (occurrence: SE)
  Receive Date: 20150508
  Receipt Date: 20150615
  Transmission Date: 20150821
  Serious: Yes (Other)
  Sender: FDA-Public Use
  Company Number: SE-PFIZER INC-2015153295

PATIENT
  Age: 57 Year
  Sex: Female

DRUGS (10)
  1. ATENOLOL SANDOZ [Concomitant]
     Active Substance: ATENOLOL
     Dosage: UNK
  2. GREPID [Concomitant]
     Dosage: UNK
  3. SALURES [Concomitant]
     Active Substance: BENDROFLUMETHIAZIDE
     Dosage: UNK
  4. DOXYCYKLIN EQL PHARMA [Concomitant]
     Dosage: UNK
  5. FORLAX [Concomitant]
     Active Substance: POLYETHYLENE GLYCOL 4000
     Dosage: UNK
  6. CLARITYN /00917501/ [Concomitant]
     Active Substance: LORATADINE
     Dosage: UNK
  7. APROVEL [Concomitant]
     Active Substance: IRBESARTAN
     Dosage: UNK
  8. NOVORAPID [Concomitant]
     Active Substance: INSULIN ASPART
     Dosage: UNK
  9. AROMASIN [Suspect]
     Active Substance: EXEMESTANE
     Indication: BREAST CANCER
     Dosage: UNK
     Dates: start: 2011, end: 20141106
  10. INSULATARD FLEXPEN [Concomitant]
     Active Substance: INSULIN HUMAN
     Dosage: UNK

REACTIONS (1)
  - Insulin-like growth factor increased [Recovered/Resolved]

NARRATIVE: CASE EVENT DATE: 2014
